FAERS Safety Report 25146807 (Version 1)
Quarter: 2025Q2

REPORT INFORMATION
  Report Type: Spontaneous
  Country: US (occurrence: US)
  Receive Date: 20250401
  Receipt Date: 20250401
  Transmission Date: 20250717
  Serious: Yes (Hospitalization)
  Sender: BEXIMCO PHARMACEUTICALS
  Company Number: US-BEXIMCO-2025BEX00021

PATIENT
  Age: 48 Year
  Sex: Female

DRUGS (1)
  1. FLECAINIDE ACETATE [Suspect]
     Active Substance: FLECAINIDE ACETATE
     Indication: Atrial fibrillation

REACTIONS (4)
  - Nodal arrhythmia [Recovering/Resolving]
  - Suicide attempt [Unknown]
  - Toxicity to various agents [Unknown]
  - Ventricular tachycardia [Recovering/Resolving]
